FAERS Safety Report 19995633 (Version 4)
Quarter: 2022Q1

REPORT INFORMATION
  Report Type: Report from Study
  Country: CN (occurrence: None)
  Receive Date: 20211025
  Receipt Date: 20220118
  Transmission Date: 20220423
  Serious: Yes (Hospitalization)
  Sender: FDA-Public Use
  Company Number: CN-ROCHE-2901859

PATIENT
  Age: 57 Year
  Sex: Female
  Weight: 57 kg

DRUGS (19)
  1. TOCILIZUMAB [Suspect]
     Active Substance: TOCILIZUMAB
     Indication: Rheumatoid arthritis
     Dosage: START DATE OF MOST RECENT DOSE OF STUDY DRUG PRIOR TO AE AND SAE: 26/AUG/2021
     Route: 058
     Dates: start: 20210618
  2. METHOTREXATE [Suspect]
     Active Substance: METHOTREXATE
     Indication: Rheumatoid arthritis
     Dosage: START DATE OF MOST RECENT DOSE OF STUDY DRUG PRIOR TO AE AND SAE: 30/AUG/2021?DOSE CONCENTRATION: 2.
     Route: 048
     Dates: start: 20210621
  3. VITAMIN D2 [Concomitant]
     Active Substance: ERGOCALCIFEROL
     Route: 048
     Dates: start: 20210316, end: 20210920
  4. FOLIC ACID [Concomitant]
     Active Substance: FOLIC ACID
     Indication: Rheumatoid arthritis
     Dates: start: 20200703, end: 20210906
  5. ACETAMINOPHEN [Concomitant]
     Active Substance: ACETAMINOPHEN
     Dates: start: 20210715, end: 20210826
  6. TECHNETIUM 99MTC METHYLENEDIPHOSPHONATE [Concomitant]
     Indication: Rheumatoid arthritis
     Dates: start: 20210902, end: 20210907
  7. MAGNESIUM ISOGLYCYRRHIZINATE [Concomitant]
     Active Substance: MAGNESIUM ISOGLYCYRRHIZINATE
     Indication: Hepatic failure
     Dates: start: 20210902, end: 20210907
  8. CALCIUM ACETATE [Concomitant]
     Active Substance: CALCIUM ACETATE
     Indication: Osteoporosis
     Dates: start: 20210903, end: 20210907
  9. LANQIN ORAL SOLUTION [Concomitant]
     Indication: Pharyngitis
     Dates: start: 20210907, end: 20211010
  10. GLYCYRRHIZIN [Concomitant]
     Active Substance: GLYCYRRHIZIN
     Indication: Hepatic failure
     Dates: start: 20210908, end: 20210916
  11. NITRENDIPINE [Concomitant]
     Active Substance: NITRENDIPINE
     Indication: Hypotension
     Dates: start: 20210904, end: 20210904
  12. ASTRAGALUS [Concomitant]
     Dates: start: 20210907, end: 20210907
  13. ANGELICA SINENSIS ROOT [Concomitant]
     Active Substance: ANGELICA SINENSIS ROOT
     Dates: start: 20210907, end: 20210907
  14. FRUCTUS LYCII [Concomitant]
     Dates: start: 20210907, end: 20210907
  15. HERBALS [Concomitant]
     Active Substance: HERBALS
     Dates: start: 20210907, end: 20210907
  16. FALLOPIA MULTIFLORA [Concomitant]
     Dates: start: 20210907, end: 20210907
  17. E JIAO [Concomitant]
     Dates: start: 20210907, end: 20210907
  18. OMEPRAZOLE [Concomitant]
     Active Substance: OMEPRAZOLE
     Dates: start: 20210916, end: 20210929
  19. IGURATIMOD [Concomitant]
     Active Substance: IGURATIMOD
     Indication: Rheumatoid arthritis
     Route: 048
     Dates: start: 20210916, end: 20211013

REACTIONS (1)
  - Intestinal obstruction [Recovered/Resolved]

NARRATIVE: CASE EVENT DATE: 20210828
